FAERS Safety Report 25025120 (Version 1)
Quarter: 2025Q1

REPORT INFORMATION
  Report Type: Spontaneous
  Country: US (occurrence: US)
  Receive Date: 20250228
  Receipt Date: 20250228
  Transmission Date: 20250409
  Serious: Yes (Hospitalization, Other)
  Sender: ELI LILLY AND COMPANY
  Company Number: US-ELI_LILLY_AND_COMPANY-US202502012838

PATIENT
  Age: 38 Year
  Sex: Female

DRUGS (4)
  1. HUMATROPE [Suspect]
     Active Substance: SOMATROPIN
     Indication: Growth hormone deficiency
     Route: 058
     Dates: start: 2024
  2. HUMATROPE [Suspect]
     Active Substance: SOMATROPIN
     Indication: Hypothalamo-pituitary disorder
  3. PHENERGAN [Interacting]
     Active Substance: PROMETHAZINE HYDROCHLORIDE
     Indication: Nausea
     Route: 065
  4. DESMOPRESSIN [Interacting]
     Active Substance: DESMOPRESSIN
     Indication: Diabetes insipidus
     Dosage: UNK, BID
     Route: 065

REACTIONS (8)
  - Tooth abscess [Recovering/Resolving]
  - Scratch [Unknown]
  - Influenza [Unknown]
  - Blood sodium decreased [Unknown]
  - Contusion [Unknown]
  - Asthenia [Unknown]
  - Nausea [Unknown]
  - Drug interaction [Unknown]
